FAERS Safety Report 7301424-5 (Version None)
Quarter: 2011Q1

REPORT INFORMATION
  Report Type: 
  Country: None (occurrence: None)
  Receive Date: 20110218
  Receipt Date: 20110215
  Transmission Date: 20110831
  Serious: Yes (Death, Other)
  Sender: FDA-Public Use
  Company Number: PHHY2011SI12509

PATIENT
  Age: 69 Year
  Sex: Male

DRUGS (4)
  1. CASODEX [Concomitant]
     Indication: PROSTATE CANCER
     Dosage: 1 DF, DAILY
  2. MARIVARIN [Concomitant]
     Indication: DEEP VEIN THROMBOSIS
  3. ALISKIREN [Suspect]
     Dosage: 300 MG, UNK
     Dates: start: 20091222
  4. MARIVARIN [Concomitant]
     Indication: CEREBROVASCULAR DISORDER

REACTIONS (7)
  - BLOOD SODIUM INCREASED [None]
  - BLOOD POTASSIUM INCREASED [None]
  - URINE ALBUMIN/CREATININE RATIO INCREASED [None]
  - BLOOD GLUCOSE INCREASED [None]
  - BLOOD CREATININE INCREASED [None]
  - GLYCOSYLATED HAEMOGLOBIN INCREASED [None]
  - DEATH [None]
